FAERS Safety Report 8611199-5 (Version None)
Quarter: 2012Q3

REPORT INFORMATION
  Report Type: 
  Country: None (occurrence: None)
  Receive Date: 20120808
  Receipt Date: 20120719
  Transmission Date: 20120928
  Serious: Yes (Hospitalization, Other)
  Sender: FDA-Public Use
  Company Number: JP-CLINIGEN HEALTHCARE LIMITED-002973

PATIENT
  Age: 51 Year
  Sex: Male

DRUGS (1)
  1. FOSCAVIR [Suspect]
     Indication: CYTOMEGALOVIRUS INFECTION
     Dosage: 7.20-G-1.00 TIMES PER-1.0 DAYS INTRAVENOUS
     Route: 042
     Dates: start: 20120417, end: 20120506

REACTIONS (5)
  - FUNGAL TEST POSITIVE [None]
  - RENAL IMPAIRMENT [None]
  - GENITAL ULCERATION [None]
  - DIALYSIS [None]
  - PULMONARY ALVEOLAR HAEMORRHAGE [None]
